FAERS Safety Report 14683859 (Version 2)
Quarter: 2018Q2

REPORT INFORMATION
  Report Type: Report from Study
  Country: US (occurrence: US)
  Receive Date: 20180327
  Receipt Date: 20180409
  Transmission Date: 20180711
  Serious: Yes (Other)
  Sender: FDA-Public Use
  Company Number: US-BAYER-2018-048763

PATIENT
  Age: 60 Year
  Sex: Female

DRUGS (2)
  1. STIVARGA [Suspect]
     Active Substance: REGORAFENIB
     Indication: RENAL CANCER
     Dosage: 80 MG, QD X 14
     Route: 048
     Dates: start: 20180306
  2. STIVARGA [Suspect]
     Active Substance: REGORAFENIB
     Indication: GASTROINTESTINAL STROMAL TUMOUR

REACTIONS (9)
  - Diarrhoea [None]
  - Muscle spasms [Not Recovered/Not Resolved]
  - Insomnia [None]
  - Gait disturbance [Not Recovered/Not Resolved]
  - Off label use [None]
  - Incorrect drug administration duration [None]
  - Musculoskeletal disorder [None]
  - Pain in extremity [Recovering/Resolving]
  - Muscle spasms [Recovering/Resolving]

NARRATIVE: CASE EVENT DATE: 201803
